FAERS Safety Report 20440727 (Version 1)
Quarter: 2022Q1

REPORT INFORMATION
  Report Type: Spontaneous
  Country: CN (occurrence: CN)
  Receive Date: 20220207
  Receipt Date: 20220207
  Transmission Date: 20220423
  Serious: Yes (Hospitalization)
  Sender: FDA-Public Use
  Company Number: CN-BAXTER-2022BAX002321

PATIENT
  Age: 52 Year
  Sex: Female
  Weight: 59 kg

DRUGS (8)
  1. CYCLOPHOSPHAMIDE [Suspect]
     Active Substance: CYCLOPHOSPHAMIDE
     Indication: Breast cancer female
     Dosage: CYCLOPHOSPHAMIDE 1G + NS 100ML
     Route: 041
     Dates: start: 20211230, end: 20211230
  2. SODIUM CHLORIDE [Suspect]
     Active Substance: SODIUM CHLORIDE
     Indication: Medication dilution
     Dosage: CYCLOPHOSPHAMIDE 1G + NS 100ML.
     Route: 041
     Dates: start: 20211230, end: 20211230
  3. DOXORUBICIN HYDROCHLORIDE [Suspect]
     Active Substance: DOXORUBICIN HYDROCHLORIDE
     Indication: Breast cancer female
     Dosage: DOXORUBICIN 100 MG + STERILE WATER FOR INJECTION 50ML
     Route: 041
     Dates: start: 20211230, end: 20211230
  4. WATER [Suspect]
     Active Substance: WATER
     Indication: Medication dilution
     Dosage: DOXORUBICIN 100 MG + STERILE WATER FOR INJECTION 50ML,
     Route: 041
     Dates: start: 20211230, end: 20211230
  5. PALONOSETRON HYDROCHLORIDE [Suspect]
     Active Substance: PALONOSETRON HYDROCHLORIDE
     Indication: Vomiting
     Route: 042
     Dates: start: 20211230, end: 20211230
  6. DEXAMETHASONE SODIUM PHOSPHATE [Suspect]
     Active Substance: DEXAMETHASONE SODIUM PHOSPHATE
     Indication: Vomiting
     Route: 042
     Dates: start: 20211230, end: 20211230
  7. APREPITANT [Suspect]
     Active Substance: APREPITANT
     Indication: Vomiting
     Dosage: (FOR CONSECUTIVE 3 DAYS)
     Route: 048
     Dates: start: 20211230, end: 20220101
  8. GRANULOCYTE COLONY-STIMULATING FACTOR NOS [Concomitant]
     Active Substance: GRANULOCYTE COLONY-STIMULATING FACTOR NOS
     Indication: Agranulocytosis
     Dosage: GIVEN ON DAY 3-7
     Route: 058

REACTIONS (5)
  - Pyrexia [Recovering/Resolving]
  - Nausea [Recovering/Resolving]
  - Vomiting [Recovering/Resolving]
  - Pancytopenia [Recovering/Resolving]
  - Cough [Unknown]

NARRATIVE: CASE EVENT DATE: 20220107
